FAERS Safety Report 18611199 (Version 1)
Quarter: 2020Q4

REPORT INFORMATION
  Report Type: Spontaneous
  Country: GB (occurrence: GB)
  Receive Date: 20201214
  Receipt Date: 20201214
  Transmission Date: 20210114
  Serious: Yes (Other)
  Sender: FDA-Public Use
  Company Number: GB-MYLANLABS-2020M1100769

PATIENT
  Age: 66 Year
  Sex: Female
  Weight: 75 kg

DRUGS (2)
  1. EFUDIX [Suspect]
     Active Substance: FLUOROURACIL
     Indication: PRODUCT USED FOR UNKNOWN INDICATION
     Dosage: 2 DOSAGE FORM, QD, APPLY
     Dates: start: 202010
  2. EFUDIX [Suspect]
     Active Substance: FLUOROURACIL
     Dosage: 1 DOSAGE FORM, QD

REACTIONS (5)
  - Tinnitus [Not Recovered/Not Resolved]
  - Micturition urgency [Recovering/Resolving]
  - Muscle spasms [Recovering/Resolving]
  - Pelvic pain [Recovering/Resolving]
  - Abdominal pain [Recovered/Resolved]

NARRATIVE: CASE EVENT DATE: 20201020
